FAERS Safety Report 6213812-9 (Version None)
Quarter: 2009Q2

REPORT INFORMATION
  Report Type: 
  Country: None (occurrence: None)
  Receive Date: 20090602
  Receipt Date: 20090527
  Transmission Date: 20091009
  Serious: Yes (Hospitalization)
  Sender: FDA-Public Use
  Company Number: TPA2009A01179

PATIENT
  Age: 77 Year
  Sex: Female
  Weight: 62.5 kg

DRUGS (3)
  1. KAPIDEX [Suspect]
     Indication: DYSPEPSIA
     Dosage: 1 IN 1 D, PER ORAL
     Route: 048
     Dates: start: 20090511, end: 20090520
  2. CAPTOPRIL [Concomitant]
  3. AMLODIPINE [Concomitant]

REACTIONS (1)
  - COLITIS ISCHAEMIC [None]
